FAERS Safety Report 9549708 (Version 1)
Quarter: 2013Q3

REPORT INFORMATION
  Report Type: Spontaneous
  Country: US (occurrence: US)
  Receive Date: 20130924
  Receipt Date: 20130924
  Transmission Date: 20140515
  Serious: Yes (Hospitalization, Other)
  Sender: FDA-Public Use
  Company Number: US-ASTRAZENECA-2013SE69690

PATIENT
  Age: 28 Year
  Sex: Female
  Weight: 106.1 kg

DRUGS (13)
  1. ATENOLOL [Suspect]
     Indication: BLOOD PRESSURE ABNORMAL
     Route: 048
  2. NEXIUM [Suspect]
     Indication: GASTROOESOPHAGEAL REFLUX DISEASE
     Route: 048
     Dates: start: 2006, end: 20130913
  3. CARAFATE [Concomitant]
     Indication: GASTRIC DISORDER
     Dosage: 1 GRAM Q3H
     Route: 048
  4. ZOCOR [Concomitant]
     Indication: BLOOD CHOLESTEROL ABNORMAL
     Route: 048
  5. ZYRTEC [Concomitant]
     Indication: MULTIPLE ALLERGIES
     Route: 048
  6. SYNTHROID [Concomitant]
     Route: 048
  7. NEURONTIN [Concomitant]
     Route: 048
  8. VISTARIL [Concomitant]
     Route: 048
  9. MAXALT [Concomitant]
     Indication: MIGRAINE
     Dosage: PRN
     Route: 048
  10. FIORINAL [Concomitant]
     Indication: MIGRAINE
     Dosage: PRN
     Route: 048
  11. EFFEXOR [Concomitant]
     Indication: DEPRESSION
     Route: 048
  12. LORAZEPAM [Concomitant]
     Indication: DEPRESSION
     Route: 048
  13. TRAZADONE [Concomitant]
     Indication: DEPRESSION
     Route: 048

REACTIONS (16)
  - Cerebrovascular accident [Recovered/Resolved with Sequelae]
  - Speech disorder [Recovered/Resolved with Sequelae]
  - Renal failure [Unknown]
  - Dehydration [Unknown]
  - Amnesia [Recovered/Resolved with Sequelae]
  - Type 2 diabetes mellitus [Unknown]
  - Blood cholesterol increased [Unknown]
  - Attention deficit/hyperactivity disorder [Recovered/Resolved with Sequelae]
  - Oesophageal spasm [Unknown]
  - Weight decreased [Unknown]
  - Parkinson^s disease [Unknown]
  - Burning sensation [Unknown]
  - Depression [None]
  - Nausea [Unknown]
  - Drug dose omission [Unknown]
  - Intentional drug misuse [Unknown]
